FAERS Safety Report 18570661 (Version 1)
Quarter: 2020Q4

REPORT INFORMATION
  Report Type: Spontaneous
  Country: US (occurrence: US)
  Receive Date: 20201202
  Receipt Date: 20201202
  Transmission Date: 20210114
  Serious: No
  Sender: FDA-Public Use
  Company Number: None

PATIENT
  Sex: Male

DRUGS (5)
  1. MECLINE TAB 25MG [Concomitant]
  2. PREDNISONE TAB 20MG [Concomitant]
     Active Substance: PREDNISONE
  3. AMOX K CLAV TAB 875-125 [Concomitant]
  4. HUMIRA [Suspect]
     Active Substance: ADALIMUMAB
     Indication: RHEUMATOID ARTHRITIS
     Dosage: ?          OTHER FREQUENCY:Q 2 WEEKS;?
     Route: 058
     Dates: start: 20200903
  5. ONDANSETRON TAB 4MG ODT [Concomitant]

REACTIONS (3)
  - Loss of personal independence in daily activities [None]
  - Condition aggravated [None]
  - Pain [None]
